FAERS Safety Report 4927605-3 (Version None)
Quarter: 2006Q1

REPORT INFORMATION
  Report Type: 
  Country: None (occurrence: None)
  Receive Date: 20060214
  Receipt Date: 20060112
  Transmission Date: 20060701
  Serious: Yes (Other)
  Sender: FDA-Public Use
  Company Number: 2006BH000691

PATIENT
  Age: 60 Year
  Sex: Female

DRUGS (2)
  1. IGIV GENERIC (IMMUNOGLOBULIN HUMAN NORMAL) [Suspect]
     Indication: GUILLAIN-BARRE SYNDROME
     Dosage: 400 MG/KG;EVERY DAY;IV
     Route: 042
  2. IGIV GENERIC (IMMUNOGLOBULIN HUMAN NORMAL) [Suspect]
     Indication: MILLER FISHER SYNDROME
     Dosage: 400 MG/KG;EVERY DAY;IV
     Route: 042

REACTIONS (10)
  - ABASIA [None]
  - BLINDNESS [None]
  - BULBAR PALSY [None]
  - CAMPYLOBACTER INFECTION [None]
  - CEREBRAL INFARCTION [None]
  - CONFUSIONAL STATE [None]
  - DIARRHOEA [None]
  - GUILLAIN-BARRE SYNDROME [None]
  - INAPPROPRIATE ANTIDIURETIC HORMONE SECRETION [None]
  - TACHYCARDIA [None]
